FAERS Safety Report 9805019 (Version 1)
Quarter: 2014Q1

REPORT INFORMATION
  Report Type: Spontaneous
  Country: US (occurrence: US)
  Receive Date: 20140109
  Receipt Date: 20140109
  Transmission Date: 20141002
  Serious: Yes (Hospitalization)
  Sender: FDA-Public Use
  Company Number: US-BEH-2014039967

PATIENT
  Sex: Female
  Weight: 48 kg

DRUGS (31)
  1. ZEMAIRA [Suspect]
     Indication: ALPHA-1 ANTI-TRYPSIN DEFICIENCY
     Dosage: RATE: 3.9 ML PER MIN
     Route: 042
  2. ZOFRAN [Concomitant]
  3. MIRALAX [Concomitant]
  4. ALBUTEROL [Concomitant]
  5. ADVAIR [Concomitant]
  6. EPIPEN [Concomitant]
  7. CALCIUM PLUS D [Concomitant]
  8. DIPHENHYDRAMINE [Concomitant]
  9. HEPARIN [Concomitant]
  10. SODIUM CHLORIDE [Concomitant]
  11. AVELOX [Concomitant]
  12. PREDNISONE [Concomitant]
  13. LUMIGAN [Concomitant]
  14. PATADAY [Concomitant]
  15. BRIMONIDINE [Concomitant]
  16. VITAMIN C [Concomitant]
  17. DOXYCYCLINE [Concomitant]
  18. XANAX [Concomitant]
  19. VIBRAMYCIN [Concomitant]
  20. DALIRESP [Concomitant]
  21. GUAIFENESIN [Concomitant]
  22. TOBI [Concomitant]
  23. ASPIRIN [Concomitant]
  24. CATHFLO [Concomitant]
  25. TRAMADOL [Concomitant]
  26. GABAPENTIN [Concomitant]
  27. NEXIUM [Concomitant]
  28. IPRATROPIUM [Concomitant]
  29. VITAMIN B12 [Concomitant]
  30. TYLENOL PM [Concomitant]
  31. OXYGEN [Concomitant]

REACTIONS (1)
  - Dyspnoea [Unknown]
